FAERS Safety Report 7448465-5 (Version None)
Quarter: 2011Q2

REPORT INFORMATION
  Report Type: 
  Country: None (occurrence: None)
  Receive Date: 20110429
  Receipt Date: 20100616
  Transmission Date: 20111010
  Serious: No
  Sender: FDA-Public Use
  Company Number: US-ASTRAZENECA-2010SE28203

PATIENT
  Age: 28 Year
  Sex: Female
  Weight: 66.7 kg

DRUGS (5)
  1. NEXIUM [Suspect]
     Indication: DYSPEPSIA
     Route: 048
     Dates: start: 20090101
  2. EAR DROPS [Concomitant]
     Indication: EAR INFECTION
  3. NEXIUM [Suspect]
     Indication: DYSPHAGIA
     Route: 048
     Dates: start: 20090101
  4. ACIPHEX [Concomitant]
  5. NEXIUM [Suspect]
     Indication: THROAT IRRITATION
     Route: 048
     Dates: start: 20090101

REACTIONS (3)
  - DYSPEPSIA [None]
  - DRUG EXPOSURE DURING PREGNANCY [None]
  - DRUG DOSE OMISSION [None]
